FAERS Safety Report 7497981-9 (Version None)
Quarter: 2011Q2

REPORT INFORMATION
  Report Type: 
  Country: None (occurrence: None)
  Receive Date: 20110524
  Receipt Date: 20110516
  Transmission Date: 20111010
  Serious: No
  Sender: FDA-Public Use
  Company Number: US-BIOGENIDEC-2011BI005146

PATIENT
  Sex: Female

DRUGS (1)
  1. TYSABRI [Suspect]
     Indication: MULTIPLE SCLEROSIS
     Route: 042
     Dates: start: 20101207

REACTIONS (7)
  - TREMOR [None]
  - INCONTINENCE [None]
  - MEMORY IMPAIRMENT [None]
  - EYE SWELLING [None]
  - MUSCULOSKELETAL DISORDER [None]
  - VISUAL IMPAIRMENT [None]
  - SPEECH DISORDER [None]
